FAERS Safety Report 10883470 (Version 1)
Quarter: 2015Q1

REPORT INFORMATION
  Report Type: Spontaneous
  Country: US (occurrence: None)
  Receive Date: 20150226
  Receipt Date: 20150226
  Transmission Date: 20150721
  Serious: Yes (Other)
  Sender: FDA-Public Use
  Company Number: None

PATIENT
  Age: 84 Year
  Sex: Female

DRUGS (8)
  1. ALBUTEROL. [Concomitant]
     Active Substance: ALBUTEROL
  2. VITAMIN D [Concomitant]
     Active Substance: CHOLECALCIFEROL
  3. ONE A DAY [Concomitant]
  4. COUMADIN [Concomitant]
     Active Substance: WARFARIN SODIUM
  5. LASIX [Concomitant]
     Active Substance: FUROSEMIDE
  6. METROPROLOL [Concomitant]
     Active Substance: METOPROLOL
  7. STOPAIN COLD PAIN RELIEVING [Suspect]
     Active Substance: MENTHOL
     Indication: MYALGIA
     Dates: start: 20150222, end: 20150224
  8. SPIRIVA [Concomitant]
     Active Substance: TIOTROPIUM BROMIDE MONOHYDRATE

REACTIONS (3)
  - Burns second degree [None]
  - Application site burn [None]
  - Product label issue [None]

NARRATIVE: CASE EVENT DATE: 20150224
